FAERS Safety Report 4301540-6 (Version None)
Quarter: 2004Q1

REPORT INFORMATION
  Report Type: 
  Country: None (occurrence: None)
  Receive Date: 20040126
  Receipt Date: 20031001
  Transmission Date: 20041129
  Serious: No
  Sender: FDA-Public Use
  Company Number: USA031048759

PATIENT
  Age: 8 Year
  Sex: Male
  Weight: 27 kg

DRUGS (1)
  1. STRATTERA [Suspect]
     Dosage: 40 MG
     Dates: start: 20030815

REACTIONS (4)
  - ANXIETY [None]
  - EATING DISORDER [None]
  - PRESCRIBED OVERDOSE [None]
  - SLEEP DISORDER [None]
